FAERS Safety Report 5392228-1 (Version None)
Quarter: 2007Q3

REPORT INFORMATION
  Report Type: 
  Country: None (occurrence: None)
  Receive Date: 20070720
  Receipt Date: 20070713
  Transmission Date: 20080115
  Serious: Yes (Other)
  Sender: FDA-Public Use
  Company Number: ZA-ASTRAZENECA-2007SE04055

PATIENT
  Sex: Female

DRUGS (2)
  1. ALTOSEC [Suspect]
     Indication: DUODENOGASTRIC REFLUX
     Route: 048
  2. LAMOTRIGINE [Concomitant]

REACTIONS (1)
  - CONVULSION [None]
